FAERS Safety Report 22253808 (Version 3)
Quarter: 2023Q2

REPORT INFORMATION
  Report Type: Spontaneous
  Country: US (occurrence: None)
  Receive Date: 20230426
  Receipt Date: 20230525
  Transmission Date: 20230722
  Serious: Yes (Death, Hospitalization, Disabling, Other)
  Sender: FDA-Public Use
  Company Number: US-Hikma Pharmaceuticals USA Inc.-US-H14001-23-01221

PATIENT
  Age: 69 Year
  Sex: Male

DRUGS (6)
  1. MORPHINE [Suspect]
     Active Substance: MORPHINE
     Indication: Prostate cancer
     Dosage: UNKNOWN
     Route: 065
  2. ORGOVYX [Suspect]
     Active Substance: RELUGOLIX
     Indication: Prostate cancer
     Route: 048
     Dates: start: 20221221
  3. ORGOVYX [Suspect]
     Active Substance: RELUGOLIX
     Dosage: UNKNOWN
     Route: 065
  4. XTANDI [Concomitant]
     Active Substance: ENZALUTAMIDE
     Indication: Product used for unknown indication
     Dosage: UNKNOWN
     Route: 065
     Dates: start: 202207
  5. XTANDI [Concomitant]
     Active Substance: ENZALUTAMIDE
     Dosage: UNKNOWN
     Route: 065
     Dates: end: 20230406
  6. LUPRON [Concomitant]
     Active Substance: LEUPROLIDE ACETATE
     Indication: Product used for unknown indication
     Dosage: UNKNOWN
     Route: 065

REACTIONS (20)
  - Septic shock [Fatal]
  - Sepsis [Fatal]
  - Bedridden [Unknown]
  - Diabetes mellitus [Not Recovered/Not Resolved]
  - Wheelchair user [Unknown]
  - Pain [Unknown]
  - Infection [Unknown]
  - Hot flush [Unknown]
  - Back pain [Unknown]
  - Upper-airway cough syndrome [Unknown]
  - Hypophagia [Unknown]
  - Secretion discharge [Unknown]
  - Cough [Unknown]
  - Feeling of body temperature change [Unknown]
  - Mobility decreased [Unknown]
  - Sedation [Not Recovered/Not Resolved]
  - Nausea [Unknown]
  - Fatigue [Unknown]
  - Malaise [Unknown]
  - Product dose omission issue [Recovered/Resolved]

NARRATIVE: CASE EVENT DATE: 20220701
